FAERS Safety Report 8845118 (Version 2)
Quarter: 2013Q1

REPORT INFORMATION
  Report Type: Spontaneous
  Country: US (occurrence: US)
  Receive Date: 20121017
  Receipt Date: 20130119
  Transmission Date: 20140127
  Serious: No
  Sender: FDA-Public Use
  Company Number: US-009507513-1210USA002568

PATIENT
  Age: 63 Year
  Sex: Male

DRUGS (6)
  1. JANUMET XR [Suspect]
     Indication: DIABETES MELLITUS
     Dosage: 100MG/1000MG, QD
     Route: 048
     Dates: start: 20121002, end: 20121003
  2. CRESTOR [Concomitant]
  3. ENABLEX [Concomitant]
  4. LISINOPRIL [Concomitant]
  5. TRICLOS [Concomitant]
  6. PROZAC [Concomitant]

REACTIONS (2)
  - Medication residue present [Unknown]
  - Product quality issue [Unknown]
